FAERS Safety Report 24760246 (Version 1)
Quarter: 2024Q4

REPORT INFORMATION
  Report Type: Spontaneous
  Country: US (occurrence: US)
  Receive Date: 20241220
  Receipt Date: 20241220
  Transmission Date: 20250115
  Serious: No
  Sender: SANOFI AVENTIS
  Company Number: US-SANOFI-02338901

PATIENT
  Age: 69 Year
  Sex: Female

DRUGS (2)
  1. LANTUS [Suspect]
     Active Substance: INSULIN GLARGINE
     Dosage: TWO TIMES A DAY IN THE MORNING AND AT NIGHT
  2. LANTUS [Suspect]
     Active Substance: INSULIN GLARGINE
     Dosage: 30 U, QD

REACTIONS (1)
  - Off label use [Unknown]
